FAERS Safety Report 8956109 (Version 2)
Quarter: 2016Q1

REPORT INFORMATION
  Report Type: Spontaneous
  Country: US (occurrence: US)
  Receive Date: 20121210
  Receipt Date: 20160121
  Transmission Date: 20160526
  Serious: Yes (Other)
  Sender: FDA-Public Use
  Company Number: US-BRISTOL-MYERS SQUIBB COMPANY-17200122

PATIENT
  Sex: Female
  Weight: 88.43 kg

DRUGS (1)
  1. ABILIFY [Suspect]
     Active Substance: ARIPIPRAZOLE
     Indication: BIPOLAR DISORDER
     Dosage: 20 MG, QD
     Route: 065

REACTIONS (3)
  - Abortion induced [Unknown]
  - Maternal exposure during pregnancy [Unknown]
  - Psychotic disorder [Unknown]
